FAERS Safety Report 10683819 (Version 2)
Quarter: 2015Q1

REPORT INFORMATION
  Report Type: Spontaneous
  Country: IT (occurrence: IT)
  Receive Date: 20141230
  Receipt Date: 20150306
  Transmission Date: 20150720
  Serious: Yes (Hospitalization)
  Sender: FDA-Public Use
  Company Number: IT-BRISTOL-MYERS SQUIBB COMPANY-BMS-2014-001794

PATIENT

DRUGS (1)
  1. COUMADIN [Suspect]
     Active Substance: WARFARIN SODIUM
     Indication: ATRIAL FIBRILLATION
     Dosage: 8.75 MG, QWK
     Route: 048
     Dates: start: 20120101

REACTIONS (4)
  - Fall [Recovered/Resolved]
  - Epistaxis [Recovered/Resolved]
  - Ecchymosis [Recovered/Resolved]
  - Head injury [Recovered/Resolved]

NARRATIVE: CASE EVENT DATE: 20141115
